FAERS Safety Report 5423751-9 (Version None)
Quarter: 2007Q3

REPORT INFORMATION
  Report Type: 
  Country: None (occurrence: None)
  Receive Date: 20070727
  Receipt Date: 20040924
  Transmission Date: 20080115
  Serious: Yes (Hospitalization)
  Sender: FDA-Public Use
  Company Number: THYM-10238

PATIENT
  Age: 43 Year
  Sex: Male

DRUGS (10)
  1. THYMOGLOBULIN [Suspect]
     Indication: RENAL TRANSPLANT
     Dosage: 150 MG QD
     Dates: start: 20040412, end: 20040414
  2. PROGRAF [Concomitant]
  3. CELLCEPT [Concomitant]
  4. PREDNISONE [Concomitant]
  5. VALCYTE [Concomitant]
  6. SEPTRA [Concomitant]
  7. GLIPIZIDE [Concomitant]
  8. SLIDING SCALE INSULIN [Concomitant]
  9. CALCIUM [Concomitant]
  10. VITAMIN D [Concomitant]

REACTIONS (4)
  - CYTOMEGALOVIRUS INFECTION [None]
  - HERPES SIMPLEX [None]
  - NEUTROPENIA [None]
  - OESOPHAGITIS [None]
